FAERS Safety Report 6647122-2 (Version None)
Quarter: 2010Q1

REPORT INFORMATION
  Report Type: 
  Country: None (occurrence: None)
  Receive Date: 20100323
  Receipt Date: 20100311
  Transmission Date: 20100710
  Serious: Yes (Hospitalization, Other)
  Sender: FDA-Public Use
  Company Number: PHEH2010US03051

PATIENT
  Sex: Female
  Weight: 79.819 kg

DRUGS (5)
  1. RECLAST [Suspect]
     Dosage: UNK
     Dates: start: 20100301
  2. CALCIUM WITH VITAMIN D [Concomitant]
     Dosage: UNK
  3. HYDROCHLOROTHIAZIDE [Concomitant]
  4. METOPROLOL TARTRATE [Concomitant]
  5. STOOL SOFTENER [Concomitant]

REACTIONS (12)
  - BLOOD DISORDER [None]
  - CHILLS [None]
  - DISORIENTATION [None]
  - DYSPNOEA [None]
  - PERIPHERAL COLDNESS [None]
  - PNEUMONIA [None]
  - PYREXIA [None]
  - RETCHING [None]
  - SWELLING [None]
  - URINARY RETENTION [None]
  - VOMITING [None]
  - WEIGHT INCREASED [None]
